FAERS Safety Report 17187092 (Version 1)
Quarter: 2019Q4

REPORT INFORMATION
  Report Type: Spontaneous
  Country: US (occurrence: US)
  Receive Date: 20191220
  Receipt Date: 20191220
  Transmission Date: 20200122
  Serious: Yes (Other)
  Sender: FDA-Public Use
  Company Number: US-COOPERSURGICAL, INC.-US-2019CPS003782

PATIENT
  Age: 28 Year
  Sex: Female
  Weight: 106.12 kg

DRUGS (2)
  1. THYROID [Concomitant]
     Active Substance: LEVOTHYROXINE\LIOTHYRONINE
     Indication: HYPOTHYROIDISM
     Dosage: UNK
     Route: 065
  2. PARAGARD T 380A [Suspect]
     Active Substance: COPPER
     Indication: CONTRACEPTION
     Dosage: UNK
     Route: 015
     Dates: start: 20140327

REACTIONS (9)
  - Pregnancy with contraceptive device [Not Recovered/Not Resolved]
  - Menorrhagia [Recovered/Resolved]
  - Device expulsion [Recovered/Resolved]
  - Dyspareunia [Unknown]
  - Drug ineffective [Unknown]
  - Complication of device removal [Not Recovered/Not Resolved]
  - Foreign body in reproductive tract [Not Recovered/Not Resolved]
  - Anembryonic gestation [Not Recovered/Not Resolved]
  - Device breakage [Not Recovered/Not Resolved]

NARRATIVE: CASE EVENT DATE: 20191017
